FAERS Safety Report 18612697 (Version 1)
Quarter: 2020Q4

REPORT INFORMATION
  Report Type: Spontaneous
  Country: US (occurrence: US)
  Receive Date: 20201214
  Receipt Date: 20201214
  Transmission Date: 20210114
  Serious: Yes (Hospitalization, Other)
  Sender: FDA-Public Use
  Company Number: US-FERRINGPH-2020FE08565

PATIENT
  Age: 71 Year
  Sex: Female

DRUGS (28)
  1. JAKAFI [Suspect]
     Active Substance: RUXOLITINIB
     Dosage: 10 UNK, IN THE MORNING
     Route: 048
     Dates: start: 20190129
  2. LASIX [Concomitant]
     Active Substance: FUROSEMIDE
  3. METAMUCIL [Concomitant]
     Active Substance: PLANTAGO SEED
  4. JAKAFI [Suspect]
     Active Substance: RUXOLITINIB
     Dosage: 10 MG, 1 TIME DAILY, EVERY MORNING
     Route: 048
     Dates: start: 20191011
  5. ATENOLOL. [Concomitant]
     Active Substance: ATENOLOL
  6. FLECAINIDE [Concomitant]
     Active Substance: FLECAINIDE
  7. SYNTHROID [Concomitant]
     Active Substance: LEVOTHYROXINE SODIUM
  8. VALIUM [Concomitant]
     Active Substance: DIAZEPAM
  9. FLOMAX [MORNIFLUMATE] [Concomitant]
     Active Substance: MORNIFLUMATE
  10. GABA [GABAPENTIN] [Concomitant]
     Active Substance: GABAPENTIN
  11. NORVASC [Concomitant]
     Active Substance: AMLODIPINE BESYLATE
  12. JAKAFI [Suspect]
     Active Substance: RUXOLITINIB
     Dosage: 10 UNK, IN THE EVENING
     Route: 048
     Dates: start: 20191011
  13. HYDROXYZINE [Concomitant]
     Active Substance: HYDROXYZINE HYDROCHLORIDE
  14. METOPROLOL TARTRATE. [Concomitant]
     Active Substance: METOPROLOL TARTRATE
  15. STIMATE [Suspect]
     Active Substance: DESMOPRESSIN ACETATE
     Indication: PRODUCT USED FOR UNKNOWN INDICATION
     Route: 065
  16. JAKAFI [Suspect]
     Active Substance: RUXOLITINIB
     Dosage: 10 MG, 2 TIMES DAILY
     Route: 048
     Dates: start: 20190129
  17. JAKAFI [Suspect]
     Active Substance: RUXOLITINIB
     Dosage: 10 UNK, IN THE MORNING
     Route: 048
     Dates: start: 20190129
  18. JAKAFI [Suspect]
     Active Substance: RUXOLITINIB
     Dosage: 10 MG, DAILY IN THE EVENING
     Route: 048
     Dates: start: 20190129
  19. JAKAFI [Suspect]
     Active Substance: RUXOLITINIB
     Dosage: 10 MG, 2 TIMES DAILY
     Route: 048
     Dates: start: 20190129
  20. JAKAFI [Suspect]
     Active Substance: RUXOLITINIB
     Dosage: 10 UNK
     Route: 048
     Dates: start: 20190129
  21. JAKAFI [Suspect]
     Active Substance: RUXOLITINIB
     Dosage: 5 MG,  2 TIMES DAILY
     Route: 048
     Dates: start: 20190129
  22. JAKAFI [Suspect]
     Active Substance: RUXOLITINIB
     Dosage: 5 MG, DAILY, IN THE MORNING
     Route: 048
     Dates: start: 20190129
  23. FLUZONE QUADRIVALENT NOS [Concomitant]
     Active Substance: INFLUENZA A VIRUS A/CALIFORNIA/7/2009 X-179A (H1N1) ANTIGEN (FORMALDEHYDE INACTIVATED)\INFLUENZA A VIRUS A/TEXAS/50/2012 X-223A (H3N2) ANTIGEN (FORMALDEHYDE INACTIVATED)\INFLUENZA B VIRUS B/BRISBANE/60/2008 ANTIGEN (FORMALDEHYDE INACTIVATED)\INFLUENZA B VIRUS B/MASSACHUSETTS/2/2012 ANTIGEN (FORMALDE
  24. METOPROLOL SUCCINATE. [Concomitant]
     Active Substance: METOPROLOL SUCCINATE
  25. JAKAFI [Suspect]
     Active Substance: RUXOLITINIB
     Indication: PRODUCT USED FOR UNKNOWN INDICATION
     Dosage: 10 MG, 2 TIMES DAILY
     Route: 048
     Dates: start: 20190128
  26. ASPIRIN (E.C.) [Concomitant]
     Active Substance: ASPIRIN
  27. SENOKOT-S [Concomitant]
     Active Substance: DOCUSATE SODIUM\SENNOSIDES
  28. TYLENOL [Concomitant]
     Active Substance: ACETAMINOPHEN

REACTIONS (11)
  - Cardiac disorder [Unknown]
  - Fatigue [Unknown]
  - Contraindicated product administered [Unknown]
  - Cardiac fibrillation [Unknown]
  - Memory impairment [Unknown]
  - Gingival pain [Unknown]
  - Somnolence [Unknown]
  - Recalled product administered [Unknown]
  - Blood sodium decreased [Unknown]
  - Gingival bleeding [Recovered/Resolved]
  - Out of specification product use [Unknown]
